FAERS Safety Report 7084421-7 (Version None)
Quarter: 2010Q4

REPORT INFORMATION
  Report Type: 
  Country: None (occurrence: None)
  Receive Date: 20101104
  Receipt Date: 20101102
  Transmission Date: 20110411
  Serious: No
  Sender: FDA-Public Use
  Company Number: US-PFIZER INC-2010139619

PATIENT
  Sex: Female
  Weight: 82.54 kg

DRUGS (5)
  1. LIPITOR [Suspect]
     Indication: BLOOD CHOLESTEROL INCREASED
     Dosage: 20 MG, DAILY
     Route: 048
  2. TOPROL-XL [Concomitant]
     Dosage: UNK
  3. SYNTHROID [Concomitant]
     Dosage: UNK
  4. BUSPAR [Concomitant]
     Dosage: UNK
  5. MOTRIN [Concomitant]
     Dosage: UNK

REACTIONS (1)
  - NAUSEA [None]
